FAERS Safety Report 13820915 (Version 4)
Quarter: 2018Q4

REPORT INFORMATION
  Report Type: Spontaneous
  Country: CA (occurrence: CA)
  Receive Date: 20170801
  Receipt Date: 20181113
  Transmission Date: 20190204
  Serious: Yes (Life-Threatening, Hospitalization, Other)
  Sender: FDA-Public Use
  Company Number: CA-PFIZER INC-2017330218

PATIENT
  Age: 58 Year
  Sex: Female
  Weight: 75 kg

DRUGS (11)
  1. DECADRON [Suspect]
     Active Substance: DEXAMETHASONE
     Indication: PREMEDICATION
  2. ONDANSETRON [Suspect]
     Active Substance: ONDANSETRON
     Indication: PREMEDICATION
     Dosage: 8 MG, Q8HR
     Route: 048
     Dates: start: 20170214
  3. NEULASTA [Suspect]
     Active Substance: PEGFILGRASTIM
     Indication: NEUTROPENIA
     Dosage: 6 MG, 1X/DAY
     Route: 058
     Dates: start: 20170215, end: 20170215
  4. DECADRON [Suspect]
     Active Substance: DEXAMETHASONE
     Indication: BREAST CANCER
     Dosage: 8 MG, BID
     Route: 065
     Dates: start: 20170213, end: 20170215
  5. METOCLOPRAMIDE HCL [Suspect]
     Active Substance: METOCLOPRAMIDE HYDROCHLORIDE
     Indication: ANTIEMETIC SUPPORTIVE CARE
     Dosage: 10 MG, EVERY FOUR-SIX HOURS
     Route: 048
     Dates: start: 20170214
  6. DOCETAXEL. [Suspect]
     Active Substance: DOCETAXEL
     Indication: BREAST CANCER
     Dosage: 145 MG, QD
     Route: 042
     Dates: start: 20170214, end: 20170214
  7. DEMEROL [Concomitant]
     Active Substance: MEPERIDINE HYDROCHLORIDE
     Dosage: UNK
  8. COVERSYL PLUS [Suspect]
     Active Substance: INDAPAMIDE\PERINDOPRIL
     Indication: HYPERTENSION
     Dosage: UNK, QD
     Route: 048
     Dates: end: 20170220
  9. TRAMADOL HCL/ACETAMINOPHEN [Concomitant]
     Active Substance: ACETAMINOPHEN\TRAMADOL HYDROCHLORIDE
     Indication: PAIN
     Route: 048
  10. PANTOPRAZOLE [Suspect]
     Active Substance: PANTOPRAZOLE
     Dosage: 40 MG, QD
     Route: 048
  11. PROCYTOX [Suspect]
     Active Substance: CYCLOPHOSPHAMIDE
     Indication: BREAST CANCER
     Dosage: 1140 MG, QD
     Route: 042
     Dates: start: 20170214, end: 20170214

REACTIONS (4)
  - Hyponatraemia [Recovered/Resolved]
  - Postictal state [Recovered/Resolved]
  - Hyponatraemic seizure [Recovered/Resolved]
  - Blood osmolarity decreased [Unknown]

NARRATIVE: CASE EVENT DATE: 201702
